FAERS Safety Report 10341241 (Version 4)
Quarter: 2015Q2

REPORT INFORMATION
  Report Type: Spontaneous
  Country: DE (occurrence: DE)
  Receive Date: 20140725
  Receipt Date: 20150626
  Transmission Date: 20150821
  Serious: Yes (Death, Other)
  Sender: FDA-Public Use
  Company Number: DE-UCBSA-2014005820

PATIENT
  Age: 76 Year
  Sex: Female

DRUGS (8)
  1. FURESIS [Concomitant]
     Active Substance: FUROSEMIDE
     Indication: VASCULAR INSUFFICIENCY
     Dosage: 20-40 TWICE DAILY
     Route: 042
     Dates: start: 20140706, end: 20140713
  2. CARBAMAZEPINE. [Concomitant]
     Active Substance: CARBAMAZEPINE
     Indication: PRODUCT USED FOR UNKNOWN INDICATION
  3. VALPROATE [Concomitant]
     Active Substance: VALPROATE SODIUM
     Indication: PRODUCT USED FOR UNKNOWN INDICATION
  4. ROCEPHIN [Concomitant]
     Active Substance: CEFTRIAXONE SODIUM
     Indication: PYREXIA
  5. VIMPAT [Suspect]
     Active Substance: LACOSAMIDE
     Indication: STATUS EPILEPTICUS
     Dosage: 200 MG, 2X/DAY (BID); NUMBER OF DOSE REVEIVED : 6
     Route: 042
     Dates: start: 20140711, end: 20140714
  6. FURESIS [Concomitant]
     Active Substance: FUROSEMIDE
     Indication: RENAL FAILURE
  7. ROCEPHIN [Concomitant]
     Active Substance: CEFTRIAXONE SODIUM
     Indication: INFECTION
     Dosage: 2 G, 2X/DAY (BID)
     Route: 042
     Dates: start: 20140712, end: 20140714
  8. ORFIRIL [Concomitant]
     Active Substance: VALPROIC ACID
     Indication: STATUS EPILEPTICUS
     Dosage: 300 MG, 4X/DAY (QID)
     Route: 042
     Dates: start: 20140711, end: 20140713

REACTIONS (5)
  - Infection [Fatal]
  - Respiratory failure [Fatal]
  - Cardiac failure [Fatal]
  - Off label use [Unknown]
  - Pyrexia [Fatal]

NARRATIVE: CASE EVENT DATE: 20140711
